FAERS Safety Report 20636695 (Version 2)
Quarter: 2022Q2

REPORT INFORMATION
  Report Type: Spontaneous
  Country: US (occurrence: US)
  Receive Date: 20220325
  Receipt Date: 20220504
  Transmission Date: 20220721
  Serious: Yes (Other)
  Sender: FDA-Public Use
  Company Number: US-PFIZER INC-202200410336

PATIENT
  Age: 60 Year
  Sex: Female

DRUGS (1)
  1. XELJANZ [Suspect]
     Active Substance: TOFACITINIB CITRATE
     Dosage: UNK
     Dates: start: 20200626, end: 20220118

REACTIONS (9)
  - Dehydration [Unknown]
  - COVID-19 [Unknown]
  - Herpes zoster [Recovered/Resolved]
  - Nausea [Unknown]
  - Hypersensitivity [Unknown]
  - Cough [Unknown]
  - Rhinorrhoea [Unknown]
  - Sinus congestion [Unknown]
  - Product dose omission issue [Unknown]

NARRATIVE: CASE EVENT DATE: 20220101
